FAERS Safety Report 21628072 (Version 1)
Quarter: 2022Q4

REPORT INFORMATION
  Report Type: Spontaneous
  Country: US (occurrence: US)
  Receive Date: 20221122
  Receipt Date: 20221122
  Transmission Date: 20230113
  Serious: No
  Sender: FDA-Public Use
  Company Number: US-PFIZER INC-PV202200107007

PATIENT
  Age: 63 Year
  Sex: Female

DRUGS (6)
  1. IBRANCE [Suspect]
     Active Substance: PALBOCICLIB
     Indication: Breast cancer female
     Dosage: 125 MG, CYCLIC, (EVERYDAY FOR 21 DAYS OF EACH 28 DAY CYCLE)
     Route: 048
     Dates: start: 20210428
  2. BIOTIN [Concomitant]
     Active Substance: BIOTIN
     Dosage: 1000 UG
  3. CALCIUM [Concomitant]
     Active Substance: CALCIUM
     Dosage: 500/D
  4. FOSAMAX [Concomitant]
     Active Substance: ALENDRONATE SODIUM
     Dosage: 70 MG
  5. LETROZOLE [Concomitant]
     Active Substance: LETROZOLE
     Dosage: 2.5 MG
  6. CHOLECALCIFEROL [Concomitant]
     Active Substance: CHOLECALCIFEROL
     Dosage: 2000 IU

REACTIONS (1)
  - Fatigue [Not Recovered/Not Resolved]
